FAERS Safety Report 9293067 (Version 1)
Quarter: 2013Q2

REPORT INFORMATION
  Report Type: Spontaneous
  Country: US (occurrence: None)
  Receive Date: 20130515
  Receipt Date: 20130515
  Transmission Date: 20140414
  Serious: Yes (Hospitalization)
  Sender: FDA-Public Use
  Company Number: None

PATIENT
  Age: 62 Year
  Sex: Male
  Weight: 130.8 kg

DRUGS (1)
  1. EVEROLIMUS [Suspect]
     Indication: RENAL CELL CARCINOMA
     Route: 048
     Dates: start: 20130301, end: 20130426

REACTIONS (6)
  - Weight increased [None]
  - Dyspnoea [None]
  - Oedema [None]
  - Generalised oedema [None]
  - Blood creatinine increased [None]
  - Blood urea increased [None]
